FAERS Safety Report 8366092-2 (Version None)
Quarter: 2012Q2

REPORT INFORMATION
  Report Type: 
  Country: None (occurrence: None)
  Receive Date: 20120516
  Receipt Date: 20120516
  Transmission Date: 20120825
  Serious: Yes (Life-Threatening, Disabling)
  Sender: FDA-Public Use
  Company Number: None

PATIENT
  Age: 60 Year
  Sex: Male
  Weight: 83.9154 kg

DRUGS (1)
  1. PREMIER VALUE (OXYMETAZOLINE HYDROCHLORIDE .05%) NASAL DECONGESTANT [Suspect]
     Indication: NASAL DISORDER
     Dosage: 2 OR 3 SPRAYS
     Route: 045
     Dates: start: 20120428

REACTIONS (11)
  - OROPHARYNGEAL PAIN [None]
  - PAIN [None]
  - MALAISE [None]
  - DIZZINESS [None]
  - FOAMING AT MOUTH [None]
  - NERVOUSNESS [None]
  - TINNITUS [None]
  - VOMITING [None]
  - EAR PAIN [None]
  - INFLAMMATION [None]
  - HEADACHE [None]
